FAERS Safety Report 7684264-7 (Version None)
Quarter: 2011Q3

REPORT INFORMATION
  Report Type: 
  Country: None (occurrence: None)
  Receive Date: 20110815
  Receipt Date: 20110804
  Transmission Date: 20111222
  Serious: Yes (Life-Threatening, Hospitalization, Disabling, Other)
  Sender: FDA-Public Use
  Company Number: JP-CELGENEUS-087-21880-11053660

PATIENT
  Sex: Female

DRUGS (39)
  1. DOXORUBICIN HYDROCHLORIDE [Suspect]
     Dosage: 14.32 MILLIGRAM
     Route: 041
     Dates: start: 20110420, end: 20110423
  2. DEXAMETHASONE [Suspect]
     Indication: MULTIPLE MYELOMA
     Dosage: 6.6 MILLIGRAM
     Route: 041
     Dates: start: 20110328, end: 20110328
  3. DEXAMETHASONE [Suspect]
     Dosage: 16.5 MILLIGRAM
     Route: 041
     Dates: start: 20110420, end: 20110423
  4. RASURITEK [Concomitant]
     Indication: PROPHYLAXIS
     Dosage: 10.5 MILLIGRAM
     Route: 041
     Dates: start: 20110328, end: 20110331
  5. NEUTROGIN [Concomitant]
     Indication: PROPHYLAXIS
     Dosage: 250 MICROGRAM
     Route: 041
     Dates: start: 20110401, end: 20110411
  6. CANDESARTAN CILEXETIL [Concomitant]
     Indication: HYPERTENSION
     Dosage: 4 MILLIGRAM
     Route: 048
     Dates: start: 20110328, end: 20110426
  7. AMLODIPINE [Concomitant]
     Indication: HYPERTENSION
     Dosage: 5 MILLIGRAM
     Route: 048
     Dates: start: 20110328, end: 20110614
  8. ZOVIRAX [Concomitant]
     Indication: PROPHYLAXIS
     Dosage: 200 MILLIGRAM
     Route: 048
     Dates: start: 20110420, end: 20110614
  9. ONCOVIN [Suspect]
     Dosage: .4 MILLIGRAM
     Route: 041
     Dates: start: 20110420, end: 20110423
  10. KYTRIL [Concomitant]
     Indication: PROPHYLAXIS
     Dosage: 6 MILLIGRAM
     Route: 041
     Dates: start: 20110328, end: 20110331
  11. KYTRIL [Concomitant]
     Dosage: 6 MILLIGRAM
     Route: 041
     Dates: start: 20110517, end: 20110520
  12. MEROPENEM [Concomitant]
     Indication: PROPHYLAXIS
     Dosage: 0.5-1.5G
     Route: 041
     Dates: start: 20110408, end: 20110411
  13. PLATELETS [Concomitant]
     Dosage: 10 U
     Route: 041
     Dates: start: 20110328, end: 20110411
  14. REVLIMID [Suspect]
     Indication: REFRACTORY CANCER
     Dosage: 25 MILLIGRAM
     Route: 048
     Dates: start: 20110411, end: 20110416
  15. MUCOSTA [Concomitant]
     Indication: PROPHYLAXIS
     Dosage: 300 MILLIGRAM
     Route: 048
     Dates: start: 20110328, end: 20110614
  16. FRESH FROZEN PLASMA-LEUKOCYTES [Concomitant]
     Dosage: 6 U
     Route: 041
     Dates: start: 20110329, end: 20110329
  17. DOXORUBICIN HYDROCHLORIDE [Suspect]
     Dosage: 14.14 MILLIGRAM
     Route: 041
     Dates: start: 20110517, end: 20110520
  18. DEXAMETHASONE [Suspect]
     Dosage: 16.5 MILLIGRAM
     Route: 041
     Dates: start: 20110517, end: 20110520
  19. KYTRIL [Concomitant]
     Dosage: 6 MILLIGRAM
     Route: 041
     Dates: start: 20110420, end: 20110423
  20. NEUTROGIN [Concomitant]
     Dosage: 100 MICROGRAM
     Route: 041
     Dates: start: 20110424, end: 20110506
  21. NEUTROGIN [Concomitant]
     Dosage: 100 MICROGRAM
     Route: 041
     Dates: start: 20110521, end: 20110526
  22. TENORMIN [Concomitant]
     Indication: HYPERTENSION
     Dosage: 50 MILLIGRAM
     Route: 048
     Dates: start: 20110328, end: 20110614
  23. ASPIRIN [Concomitant]
     Indication: PROPHYLAXIS
     Dosage: 100 MILLIGRAM
     Route: 048
     Dates: start: 20110406, end: 20110614
  24. ZANTAC [Concomitant]
     Indication: PROPHYLAXIS
     Dosage: 150 MILLIGRAM
     Route: 048
     Dates: start: 20110328, end: 20110420
  25. ZANTAC [Concomitant]
     Dosage: 300 MILLIGRAM
     Route: 048
     Dates: start: 20110420, end: 20110614
  26. ONCOVIN [Suspect]
     Indication: MULTIPLE MYELOMA
     Dosage: .4 MILLIGRAM
     Route: 041
     Dates: start: 20110328, end: 20110331
  27. DOXORUBICIN HYDROCHLORIDE [Suspect]
     Indication: MULTIPLE MYELOMA
     Dosage: 14.44 MILLIGRAM
     Route: 041
     Dates: start: 20110328, end: 20110331
  28. SULFAMETHOXAZOLE [Concomitant]
     Indication: PROPHYLAXIS
     Dosage: 1 GRAM
     Route: 048
     Dates: start: 20110328, end: 20110614
  29. REVLIMID [Suspect]
     Indication: MULTIPLE MYELOMA
     Dosage: 25 MILLIGRAM
     Route: 048
     Dates: start: 20110328, end: 20110404
  30. REVLIMID [Suspect]
     Dosage: 25 MILLIGRAM
     Route: 048
     Dates: start: 20110420, end: 20110503
  31. REVLIMID [Suspect]
     Dosage: 25 MILLIGRAM
     Route: 048
     Dates: start: 20110517, end: 20110523
  32. RECOMODULIN [Concomitant]
     Dosage: 12800 U
     Route: 041
     Dates: start: 20110328, end: 20110401
  33. FUNGIZONE [Concomitant]
     Indication: PROPHYLAXIS
     Dosage: 8 MILLILITER
     Route: 048
     Dates: start: 20110328, end: 20110614
  34. ALENDRONATE SODIUM [Concomitant]
     Indication: PROPHYLAXIS
     Dosage: 35 MILLIGRAM
     Route: 048
     Dates: start: 20110328, end: 20110420
  35. LYRICA [Concomitant]
     Dosage: 300 MILLIGRAM
     Route: 048
     Dates: start: 20110328, end: 20110614
  36. ALENDRONATE SODIUM [Concomitant]
     Dosage: 35 MILLIGRAM
     Route: 048
     Dates: start: 20110422, end: 20110610
  37. REVLIMID [Suspect]
     Dosage: 25 MILLIGRAM
     Route: 048
     Dates: start: 20110525, end: 20110531
  38. ONCOVIN [Suspect]
     Dosage: .4 MILLIGRAM
     Route: 041
     Dates: start: 20110517, end: 20110520
  39. IRRADIATED RED CELLS [Concomitant]
     Dosage: 2 U
     Route: 041
     Dates: start: 20110401, end: 20110401

REACTIONS (6)
  - HEADACHE [None]
  - VOMITING [None]
  - WHITE BLOOD CELL COUNT DECREASED [None]
  - PANCYTOPENIA [None]
  - GAIT DISTURBANCE [None]
  - CONSTIPATION [None]
